FAERS Safety Report 8486941-7 (Version None)
Quarter: 2012Q3

REPORT INFORMATION
  Report Type: 
  Country: None (occurrence: None)
  Receive Date: 20120704
  Receipt Date: 20120601
  Transmission Date: 20120928
  Serious: No
  Sender: FDA-Public Use
  Company Number: US-BAUSCH-2012BL003689

PATIENT
  Age: 93 Year
  Sex: Female

DRUGS (1)
  1. ZIRGAN [Suspect]
     Indication: VIRAL INFECTION
     Route: 047
     Dates: start: 20120522

REACTIONS (4)
  - HEADACHE [None]
  - ASTHENIA [None]
  - NAUSEA [None]
  - DECREASED APPETITE [None]
